FAERS Safety Report 15766344 (Version 1)
Quarter: 2018Q4

REPORT INFORMATION
  Report Type: Spontaneous
  Country: JP (occurrence: JP)
  Receive Date: 20181227
  Receipt Date: 20181227
  Transmission Date: 20190205
  Serious: Yes (Death, Hospitalization)
  Sender: FDA-Public Use
  Company Number: JP-TEVA-2018-JP-991713

PATIENT
  Age: 9 Year
  Sex: Male

DRUGS (6)
  1. ETOPOSIDE. [Suspect]
     Active Substance: ETOPOSIDE
     Indication: ANAPLASTIC ASTROCYTOMA
     Dosage: 14 CYCLES
     Route: 065
  2. VINCRISTINE [Concomitant]
     Active Substance: VINCRISTINE
     Indication: ANAPLASTIC ASTROCYTOMA
     Dosage: 4 WITH CYCLOPHOSPHAMIDE, CISPLATIN, THIOTEPA AND MELPHALAN
     Route: 065
  3. CISPLATIN. [Concomitant]
     Active Substance: CISPLATIN
     Indication: ANAPLASTIC ASTROCYTOMA
     Dosage: 4 WITH CYCLOPHOSPHAMIDE, VINCRISTINE, THIOTEPA AND MELPHALAN
     Route: 065
  4. MELPHALAN. [Concomitant]
     Active Substance: MELPHALAN
     Indication: ANAPLASTIC ASTROCYTOMA
     Dosage: 4 WITH CYCLOPHOSPHAMIDE, CISPLATIN, VINCRISTINE AND THIOTEPA
     Route: 065
  5. CYCLOPHOSPHAMIDE. [Suspect]
     Active Substance: CYCLOPHOSPHAMIDE
     Indication: ANAPLASTIC ASTROCYTOMA
     Dosage: 4 CYCLES WITH VINCRISTINE, CISPLATIN, THIOTEPA AND MELPHALAN
     Route: 065
  6. THIOTEPA. [Concomitant]
     Active Substance: THIOTEPA
     Indication: ANAPLASTIC ASTROCYTOMA
     Dosage: 4 WITH CYCLOPHOSPHAMIDE, CISPLATIN, VINCRISTINE AND MELPHALAN
     Route: 065

REACTIONS (1)
  - Osteosarcoma metastatic [Fatal]
